FAERS Safety Report 4983133-0 (Version None)
Quarter: 2006Q2

REPORT INFORMATION
  Report Type: 
  Country: None (occurrence: None)
  Receive Date: 20060419
  Receipt Date: 20060405
  Transmission Date: 20061013
  Serious: Yes (Hospitalization)
  Sender: FDA-Public Use
  Company Number: GXKR2006NO01997

PATIENT
  Age: 40 Year
  Sex: Male

DRUGS (4)
  1. MIRTAZAPINE [Suspect]
     Indication: DEPRESSION
     Dosage: QD, ORAL
     Route: 048
  2. LAMOTRIGINE [Suspect]
     Indication: CONVULSION
     Dosage: BID, ORAL
     Route: 048
     Dates: start: 20051209
  3. TRAMADOL HCL [Suspect]
     Indication: FIBROMYALGIA
     Dosage: QD, ORAL
     Route: 048
  4. PIROXICAM [Suspect]
     Indication: MYALGIA
     Dosage: QD, ORAL
     Route: 048

REACTIONS (1)
  - BLOOD CREATINE PHOSPHOKINASE INCREASED [None]
